FAERS Safety Report 13301648 (Version 1)
Quarter: 2017Q1

REPORT INFORMATION
  Report Type: Spontaneous
  Country: US (occurrence: US)
  Receive Date: 20170306
  Receipt Date: 20170306
  Transmission Date: 20170428
  Serious: Yes (Other)
  Sender: FDA-Public Use
  Company Number: None

PATIENT
  Age: 36 Year
  Sex: Female
  Weight: 83.01 kg

DRUGS (1)
  1. LIDOCAINE PATCH 5% ACTAVIS [Suspect]
     Active Substance: LIDOCAINE
     Route: 061
     Dates: start: 20170103, end: 20170223

REACTIONS (4)
  - Application site swelling [None]
  - Pain [None]
  - Application site erythema [None]
  - Application site urticaria [None]

NARRATIVE: CASE EVENT DATE: 20170221
